FAERS Safety Report 7741667-X (Version None)
Quarter: 2011Q3

REPORT INFORMATION
  Report Type: 
  Country: None (occurrence: None)
  Receive Date: 20110912
  Receipt Date: 20110902
  Transmission Date: 20111222
  Serious: Yes (Hospitalization)
  Sender: FDA-Public Use
  Company Number: US-RANBAXY-2011US-47429

PATIENT
  Age: 56 Year
  Sex: Female

DRUGS (2)
  1. POTASSIUM ER [Suspect]
     Indication: PRODUCT USED FOR UNKNOWN INDICATION
     Dosage: 20 MEQ, UNK
     Route: 048
  2. LISINOPRIL [Suspect]
     Indication: PRODUCT USED FOR UNKNOWN INDICATION
     Dosage: 10 MG, UNK
     Route: 048

REACTIONS (5)
  - HYPOTENSION [None]
  - SUICIDE ATTEMPT [None]
  - OVERDOSE [None]
  - HYPERKALAEMIA [None]
  - CARDIAC ARREST [None]
